FAERS Safety Report 8051971-6 (Version None)
Quarter: 2012Q1

REPORT INFORMATION
  Report Type: 
  Country: None (occurrence: None)
  Receive Date: 20120118
  Receipt Date: 20120112
  Transmission Date: 20120608
  Serious: Yes (Other)
  Sender: FDA-Public Use
  Company Number: US-JNJFOC-20120104518

PATIENT
  Sex: Female
  Weight: 98.43 kg

DRUGS (5)
  1. RISPERDAL CONSTA [Suspect]
     Indication: SCHIZOPHRENIA
     Route: 030
     Dates: start: 20030101
  2. XANAX [Concomitant]
     Indication: ANXIETY
     Route: 048
  3. RISPERDAL [Suspect]
     Route: 048
     Dates: end: 20030101
  4. DEPAKOTE [Concomitant]
     Indication: ANXIETY
     Route: 048
  5. RISPERDAL [Suspect]
     Indication: SCHIZOPHRENIA
     Route: 048

REACTIONS (4)
  - BLOOD CHOLESTEROL INCREASED [None]
  - HYPERTENSION [None]
  - RENAL IMPAIRMENT [None]
  - EMOTIONAL DISORDER [None]
